FAERS Safety Report 9224312 (Version 1)
Quarter: 2013Q2

REPORT INFORMATION
  Report Type: Spontaneous
  Country: US (occurrence: None)
  Receive Date: 20130409
  Receipt Date: 20130409
  Transmission Date: 20140414
  Serious: Yes (Life-Threatening, Hospitalization)
  Sender: FDA-Public Use
  Company Number: None

PATIENT
  Age: 71 Year
  Sex: Female
  Weight: 69.85 kg

DRUGS (1)
  1. METHADONE [Suspect]
     Indication: PAIN
     Route: 048
     Dates: start: 200501, end: 201303

REACTIONS (3)
  - Arrhythmia [None]
  - Coma [None]
  - Rhabdomyolysis [None]
